FAERS Safety Report 9162367 (Version 1)
Quarter: 2013Q1

REPORT INFORMATION
  Report Type: Spontaneous
  Country: US (occurrence: US)
  Receive Date: 20130314
  Receipt Date: 20130314
  Transmission Date: 20140127
  Serious: No
  Sender: FDA-Public Use
  Company Number: US-PFIZER INC-2013083620

PATIENT
  Age: 32 Year
  Sex: Male
  Weight: 102.4 kg

DRUGS (1)
  1. CHANTIX [Suspect]
     Indication: SMOKING CESSATION THERAPY
     Dosage: 1 MG, 2X/DAY
     Route: 048
     Dates: start: 20130121, end: 20130221

REACTIONS (3)
  - Dysgeusia [Unknown]
  - Abnormal dreams [Recovered/Resolved]
  - Intentional drug misuse [Recovered/Resolved]
